APPROVED DRUG PRODUCT: IRBESARTAN
Active Ingredient: IRBESARTAN
Strength: 300MG
Dosage Form/Route: TABLET;ORAL
Application: A206194 | Product #003 | TE Code: AB
Applicant: HISUN PHARMACEUTICAL (HANGZHOU) CO LTD
Approved: Jun 14, 2016 | RLD: No | RS: No | Type: RX